FAERS Safety Report 25048177 (Version 1)
Quarter: 2025Q1

REPORT INFORMATION
  Report Type: Spontaneous
  Country: US (occurrence: None)
  Receive Date: 20250306
  Receipt Date: 20250306
  Transmission Date: 20250409
  Serious: Yes (Death)
  Sender: MDD OPERATIONS
  Company Number: US-MDD US Operations-MDD202502-000659

PATIENT
  Sex: Female

DRUGS (1)
  1. APOKYN [Suspect]
     Active Substance: APOMORPHINE HYDROCHLORIDE
     Indication: Product used for unknown indication

REACTIONS (3)
  - Death [Fatal]
  - Malaise [Unknown]
  - Inappropriate schedule of product administration [Unknown]
